FAERS Safety Report 16497397 (Version 2)
Quarter: 2019Q3

REPORT INFORMATION
  Report Type: Report from Study
  Country: CO (occurrence: CO)
  Receive Date: 20190628
  Receipt Date: 20190705
  Transmission Date: 20191004
  Serious: Yes (Death, Hospitalization, Other)
  Sender: FDA-Public Use
  Company Number: CO-ALEXION-A201909078

PATIENT
  Age: 25 Year
  Sex: Female

DRUGS (1)
  1. SOLIRIS [Suspect]
     Active Substance: ECULIZUMAB
     Indication: ATYPICAL HAEMOLYTIC URAEMIC SYNDROME
     Dosage: 900 MG, QW
     Route: 042
     Dates: start: 20190518

REACTIONS (7)
  - Empyema [Unknown]
  - Pneumonia [Unknown]
  - Systemic candida [Recovered/Resolved]
  - Cardiac arrest [Fatal]
  - Pleural effusion [Unknown]
  - Infection [Unknown]
  - Pneumothorax [Unknown]

NARRATIVE: CASE EVENT DATE: 201906
